FAERS Safety Report 5654935-2 (Version None)
Quarter: 2008Q1

REPORT INFORMATION
  Report Type: 
  Country: None (occurrence: None)
  Receive Date: 20080307
  Receipt Date: 20070913
  Transmission Date: 20080703
  Serious: No
  Sender: FDA-Public Use
  Company Number: A0681854A

PATIENT
  Age: 48 Year
  Sex: Male

DRUGS (1)
  1. REQUIP [Suspect]
     Indication: RESTLESS LEGS SYNDROME
     Dosage: .25MG THREE TIMES PER DAY
     Route: 048
     Dates: start: 20070906

REACTIONS (7)
  - ABDOMINAL DISTENSION [None]
  - ABDOMINAL PAIN UPPER [None]
  - DIARRHOEA [None]
  - HYPERSOMNIA [None]
  - MEDICATION ERROR [None]
  - NAUSEA [None]
  - VOMITING [None]
